FAERS Safety Report 4359506-6 (Version None)
Quarter: 2004Q2

REPORT INFORMATION
  Report Type: 
  Country: None (occurrence: None)
  Receive Date: 20040512
  Receipt Date: 20040430
  Transmission Date: 20050107
  Serious: Yes (Death)
  Sender: FDA-Public Use
  Company Number: 163-20785-04040402

PATIENT
  Age: 75 Year
  Sex: Female

DRUGS (1)
  1. THALOMID [Suspect]
     Indication: DRUG USE FOR UNKNOWN INDICATION
     Dosage: 50 MG, DAILY, ORAL
     Route: 048
     Dates: start: 20030904, end: 20030101

REACTIONS (2)
  - CARCINOMA [None]
  - DRUG INEFFECTIVE [None]
